FAERS Safety Report 9126477 (Version 1)
Quarter: 2013Q1

REPORT INFORMATION
  Report Type: Report from Study
  Country: VE (occurrence: VE)
  Receive Date: 20130121
  Receipt Date: 20130121
  Transmission Date: 20140127
  Serious: Yes (Other)
  Sender: FDA-Public Use
  Company Number: VE-ABBOTT-13P-178-1037637-00

PATIENT
  Sex: Female

DRUGS (1)
  1. HUMIRA [Suspect]
     Indication: RHEUMATOID ARTHRITIS
     Dosage: 1 PRE-FILLED SYRINGE
     Route: 058
     Dates: end: 2011

REACTIONS (1)
  - Vasculitis [Unknown]
